FAERS Safety Report 12449208 (Version 5)
Quarter: 2017Q1

REPORT INFORMATION
  Report Type: Report from Study
  Country: US (occurrence: US)
  Receive Date: 20160608
  Receipt Date: 20170209
  Transmission Date: 20170428
  Serious: Yes (Hospitalization, Disabling)
  Sender: FDA-Public Use
  Company Number: US-ACTELION-A-NJ2016-137243

PATIENT
  Age: 73 Year
  Sex: Female

DRUGS (19)
  1. LEVOTHYROXINE. [Concomitant]
     Active Substance: LEVOTHYROXINE
  2. TRAMADOL. [Concomitant]
     Active Substance: TRAMADOL
  3. LISINOPRIL. [Concomitant]
     Active Substance: LISINOPRIL
  4. FLUTICASONE PROPIONATE. [Concomitant]
     Active Substance: FLUTICASONE PROPIONATE
  5. PERCOCET [Concomitant]
     Active Substance: ACETAMINOPHEN\OXYCODONE HYDROCHLORIDE
     Dosage: 10/325 MG, UNK
  6. OXYCODONE W/PARACETAMOL [Concomitant]
     Active Substance: ACETAMINOPHEN\OXYCODONE HYDROCHLORIDE
  7. DICLOXACILLIN [Concomitant]
     Active Substance: DICLOXACILLIN
  8. HYDROCODONE BITARTRATE AND ACETAMINOPHEN [Concomitant]
     Active Substance: ACETAMINOPHEN\HYDROCODONE BITARTRATE
  9. OMEPRAZOLE. [Concomitant]
     Active Substance: OMEPRAZOLE
  10. DILTIAZEM. [Concomitant]
     Active Substance: DILTIAZEM
  11. LIDOCAINE. [Concomitant]
     Active Substance: LIDOCAINE
  12. NEURONTIN [Concomitant]
     Active Substance: GABAPENTIN
     Dosage: 100 MG, UNK
  13. AMLODIPINE BESYLATE. [Concomitant]
     Active Substance: AMLODIPINE BESYLATE
  14. CRESTOR [Concomitant]
     Active Substance: ROSUVASTATIN CALCIUM
  15. CIPROFLOXACIN. [Concomitant]
     Active Substance: CIPROFLOXACIN
  16. OXYCONTIN [Concomitant]
     Active Substance: OXYCODONE HYDROCHLORIDE
     Dosage: 10 MG, UNK
  17. TRACLEER [Suspect]
     Active Substance: BOSENTAN
     Indication: PULMONARY ARTERIAL HYPERTENSION
     Dosage: 125 MG, UNK
     Route: 048
     Dates: start: 20160502
  18. HYDROCHLOROTHIAZIDE. [Concomitant]
     Active Substance: HYDROCHLOROTHIAZIDE
  19. CEFDINIR. [Concomitant]
     Active Substance: CEFDINIR

REACTIONS (4)
  - Amputation [Recovering/Resolving]
  - Thrombosis [Recovered/Resolved]
  - Leg amputation [Recovered/Resolved]
  - Postoperative wound infection [Unknown]

NARRATIVE: CASE EVENT DATE: 20170106
